FAERS Safety Report 5944722-X (Version None)
Quarter: 2008Q4

REPORT INFORMATION
  Report Type: 
  Country: None (occurrence: None)
  Receive Date: 20081107
  Receipt Date: 20081028
  Transmission Date: 20090506
  Serious: Yes (Other)
  Sender: FDA-Public Use
  Company Number: FR-ROCHE-594012

PATIENT
  Sex: Male

DRUGS (1)
  1. ROVALCYTE [Suspect]
     Indication: CYTOMEGALOVIRUS INFECTION
     Dosage: INDICATION REPORTED AS INFECTION OR CMV DISEASE
     Route: 065

REACTIONS (1)
  - GUILLAIN-BARRE SYNDROME [None]
